FAERS Safety Report 4579647-8 (Version None)
Quarter: 2005Q1

REPORT INFORMATION
  Report Type: 
  Country: None (occurrence: None)
  Receive Date: 20050210
  Receipt Date: 20050203
  Transmission Date: 20050727
  Serious: Yes (Other)
  Sender: FDA-Public Use
  Company Number: HQWYE075503FEB05

PATIENT

DRUGS (1)
  1. EFFEXOR XR [Suspect]
     Dosage: 150 MG (FREQUENCY UNSPECIFIED) ORAL
     Route: 048
     Dates: start: 20040101

REACTIONS (1)
  - CARDIOMYOPATHY [None]
